FAERS Safety Report 20556521 (Version 1)
Quarter: 2022Q1

REPORT INFORMATION
  Report Type: Spontaneous
  Country: US (occurrence: US)
  Receive Date: 20220307
  Receipt Date: 20220307
  Transmission Date: 20220423
  Serious: Yes (Other)
  Sender: FDA-Public Use
  Company Number: US-TEVA-2022-US-2012499

PATIENT
  Sex: Female

DRUGS (2)
  1. WARFARIN SODIUM [Suspect]
     Active Substance: WARFARIN SODIUM
     Indication: Thrombosis
     Route: 065
     Dates: start: 2014
  2. WARFARIN SODIUM [Suspect]
     Active Substance: WARFARIN SODIUM
     Dosage: 6 MILLIGRAM DAILY; ONE 4 MG TABLET AND CUTS ONE 4 MG TABLET IN HALF FOR A TOTAL OF 6 MG
     Route: 065

REACTIONS (4)
  - Breast operation [Recovered/Resolved]
  - Transient ischaemic attack [Not Recovered/Not Resolved]
  - Product physical issue [Recovered/Resolved]
  - International normalised ratio increased [Unknown]

NARRATIVE: CASE EVENT DATE: 20150101
